FAERS Safety Report 8471189-2 (Version None)
Quarter: 2012Q2

REPORT INFORMATION
  Report Type: 
  Country: None (occurrence: None)
  Receive Date: 20120627
  Receipt Date: 20120620
  Transmission Date: 20120825
  Serious: Yes (Other)
  Sender: FDA-Public Use
  Company Number: JP-PFIZER INC-2012121869

PATIENT
  Age: 69 Year
  Sex: Male

DRUGS (2)
  1. OXYCONTIN [Concomitant]
     Dosage: UNK
  2. LYRICA [Suspect]
     Dosage: 75 MG, 1X/DAY
     Route: 048

REACTIONS (2)
  - CONDITION AGGRAVATED [None]
  - DYSPHAGIA [None]
